FAERS Safety Report 17485464 (Version 5)
Quarter: 2020Q2

REPORT INFORMATION
  Report Type: Spontaneous
  Country: US (occurrence: US)
  Receive Date: 20200302
  Receipt Date: 20200402
  Transmission Date: 20200713
  Serious: No
  Sender: FDA-Public Use
  Company Number: US-BIOGEN-2020BI00840681

PATIENT
  Age: 33 Year
  Sex: Female
  Weight: 59.47 kg

DRUGS (9)
  1. TECFIDERA [Suspect]
     Active Substance: DIMETHYL FUMARATE
     Indication: MULTIPLE SCLEROSIS
     Dosage: STARTING DOSE
     Route: 048
     Dates: start: 20200216
  2. TECFIDERA [Suspect]
     Active Substance: DIMETHYL FUMARATE
     Route: 048
     Dates: start: 20200216
  3. NADOLOL. [Concomitant]
     Active Substance: NADOLOL
     Route: 048
  4. CLARITIN [Concomitant]
     Active Substance: LORATADINE
     Route: 048
  5. DOXYCYCLIN [Concomitant]
     Active Substance: DOXYCYCLINE
     Route: 048
  6. EXCEDRIN [Concomitant]
     Active Substance: ACETAMINOPHEN\ASPIRIN\CAFFEINE
  7. PHENERGAN [Concomitant]
     Active Substance: PROMETHAZINE HYDROCHLORIDE
     Route: 048
  8. TECFIDERA [Suspect]
     Active Substance: DIMETHYL FUMARATE
     Route: 065
     Dates: start: 202002
  9. ALEVE [Concomitant]
     Active Substance: NAPROXEN SODIUM
     Route: 048

REACTIONS (8)
  - Viral upper respiratory tract infection [Recovered/Resolved]
  - Underdose [Unknown]
  - Abdominal pain [Recovered/Resolved]
  - Decreased appetite [Unknown]
  - Hypersensitivity [Not Recovered/Not Resolved]
  - Nausea [Unknown]
  - Abdominal pain upper [Unknown]
  - Diarrhoea [Unknown]

NARRATIVE: CASE EVENT DATE: 20200215
